FAERS Safety Report 7474633-2 (Version None)
Quarter: 2011Q1

REPORT INFORMATION
  Report Type: 
  Country: None (occurrence: None)
  Receive Date: 20110302
  Receipt Date: 20100907
  Transmission Date: 20110831
  Serious: Yes (Hospitalization, Other)
  Sender: FDA-Public Use
  Company Number: 163-21880-10032548

PATIENT
  Age: 73 Year
  Sex: Male
  Weight: 89.3586 kg

DRUGS (22)
  1. PROTONIX [Concomitant]
  2. AUGMENTIN '125' [Concomitant]
  3. GABAPENTIN [Concomitant]
  4. PROPOXY/APAP (PROCET /USA/) [Concomitant]
  5. PLAVIX [Concomitant]
  6. ASPIR-TRIN (ACETYLSALICYLIC ACID) [Concomitant]
  7. HYDREA [Concomitant]
  8. AMLODIPINE [Concomitant]
  9. ASCORBIC ACID [Concomitant]
  10. AMITRIPTYLINE HCL [Concomitant]
  11. FOLIC ACID [Concomitant]
  12. SPECTRAVITE SENIOR (MULTIVITAMINS) [Concomitant]
  13. PROPOXYPHENE (DEXTROPROPOXYPHENE) [Concomitant]
  14. VANCOMYCIN [Concomitant]
  15. PREDNISONE [Concomitant]
  16. CEFEPIME [Concomitant]
  17. REVLIMID [Suspect]
     Indication: MYELODYSPLASTIC SYNDROME
     Dosage: 5 MG, 1 IN 1 D, PO; 10 MG, EVERY OTHER DAY AT BEDTIME, PO
     Route: 048
     Dates: start: 20100305
  18. REVLIMID [Suspect]
     Indication: MYELODYSPLASTIC SYNDROME
     Dosage: 5 MG, 1 IN 1 D, PO; 10 MG, EVERY OTHER DAY AT BEDTIME, PO
     Route: 048
     Dates: start: 20100817
  19. VITAMIN B COMPLEX (B-KOMPLEX ^LECIVA^) [Concomitant]
  20. VITAMIN B-12 [Concomitant]
  21. METRONIDAZOLE [Concomitant]
  22. ATENOLOL [Concomitant]

REACTIONS (5)
  - VASCULAR INSUFFICIENCY [None]
  - PARAESTHESIA [None]
  - GANGRENE [None]
  - BLOOD CREATININE INCREASED [None]
  - URINARY TRACT INFECTION [None]
